FAERS Safety Report 25375474 (Version 1)
Quarter: 2025Q2

REPORT INFORMATION
  Report Type: Spontaneous
  Country: US (occurrence: None)
  Receive Date: 20250529
  Receipt Date: 20250529
  Transmission Date: 20250717
  Serious: Yes (Hospitalization)
  Sender: FDA-CTU
  Company Number: None

PATIENT
  Age: 59 Year
  Sex: Female

DRUGS (1)
  1. NUCALA [Suspect]
     Active Substance: MEPOLIZUMAB
     Indication: Asthma
     Dosage: FREQUENCY : MONTHLY;?

REACTIONS (7)
  - Headache [None]
  - Flushing [None]
  - Confusional state [None]
  - Nausea [None]
  - Lethargy [None]
  - Gait disturbance [None]
  - Therapy cessation [None]
